FAERS Safety Report 7759395-3 (Version None)
Quarter: 2011Q3

REPORT INFORMATION
  Report Type: 
  Country: None (occurrence: None)
  Receive Date: 20110915
  Receipt Date: 20110908
  Transmission Date: 20111222
  Serious: Yes (Hospitalization, Other)
  Sender: FDA-Public Use
  Company Number: 2011SP032409

PATIENT
  Age: 38 Year
  Sex: Female

DRUGS (3)
  1. RIBAVIRIN [Suspect]
     Indication: HEPATITIS C
     Dosage: UNK;UNK
     Dates: start: 20110328
  2. VICTRELIS [Suspect]
     Indication: PRODUCT USED FOR UNKNOWN INDICATION
     Dates: start: 20110101
  3. PEG-INTRON [Suspect]
     Indication: HEPATITIS C
     Dosage: UNK;UNK
     Dates: start: 20110328

REACTIONS (7)
  - DYSPNOEA [None]
  - PYREXIA [None]
  - BLOOD IRON DECREASED [None]
  - WHITE BLOOD CELL COUNT DECREASED [None]
  - CHEST DISCOMFORT [None]
  - RESPIRATORY TRACT CONGESTION [None]
  - NASAL CONGESTION [None]
